FAERS Safety Report 18909862 (Version 1)
Quarter: 2021Q1

REPORT INFORMATION
  Report Type: Spontaneous
  Country: US (occurrence: US)
  Receive Date: 20210218
  Receipt Date: 20210218
  Transmission Date: 20210420
  Serious: Yes (Other)
  Sender: FDA-Public Use
  Company Number: None

PATIENT
  Age: 59 Year
  Sex: Female
  Weight: 65.25 kg

DRUGS (6)
  1. NP THYROID [Suspect]
     Active Substance: LEVOTHYROXINE\LIOTHYRONINE
     Indication: HYPOTHYROIDISM
     Route: 048
     Dates: start: 20200112
  2. NP THYROID [Concomitant]
     Active Substance: LEVOTHYROXINE\LIOTHYRONINE
  3. VITAMIN D [Concomitant]
     Active Substance: VITAMIN D NOS
  4. LANTUS [Concomitant]
     Active Substance: INSULIN GLARGINE
  5. HUMALOG [Concomitant]
     Active Substance: INSULIN LISPRO
  6. VITAMIN C [Concomitant]
     Active Substance: ASCORBIC ACID

REACTIONS (13)
  - Fatigue [None]
  - Therapeutic response decreased [None]
  - Blood thyroid stimulating hormone increased [None]
  - Diabetes mellitus inadequate control [None]
  - Drug effect less than expected [None]
  - Product odour abnormal [None]
  - Product taste abnormal [None]
  - Alopecia [None]
  - Feeling abnormal [None]
  - Myalgia [None]
  - Hyperglycaemia [None]
  - Symptom recurrence [None]
  - Arthralgia [None]

NARRATIVE: CASE EVENT DATE: 20210201
